FAERS Safety Report 7986901-6 (Version None)
Quarter: 2011Q4

REPORT INFORMATION
  Report Type: 
  Country: None (occurrence: None)
  Receive Date: 20111216
  Receipt Date: 20110304
  Transmission Date: 20120403
  Serious: No
  Sender: FDA-Public Use
  Company Number: US-BRISTOL-MYERS SQUIBB COMPANY-15590235

PATIENT
  Age: 56 Year
  Sex: Female

DRUGS (2)
  1. ABILIFY [Suspect]
     Indication: AFFECTIVE DISORDER
     Dosage: STARTED SINCE 4 MONTHS
     Dates: start: 20100101
  2. GABAPENTIN [Concomitant]
     Dosage: 1DF= 300 MG (6 TABS A DAY).

REACTIONS (1)
  - TRISMUS [None]
